FAERS Safety Report 8540008-8 (Version None)
Quarter: 2012Q3

REPORT INFORMATION
  Report Type: 
  Country: None (occurrence: None)
  Receive Date: 20120713
  Receipt Date: 20120628
  Transmission Date: 20120928
  Serious: Yes (Hospitalization)
  Sender: FDA-Public Use
  Company Number: 1316638

PATIENT
  Age: 58 Year
  Sex: Female

DRUGS (3)
  1. MIDAZOLAM [Suspect]
     Indication: PRODUCT USED FOR UNKNOWN INDICATION
     Dosage: UNKNOWN, INTRAVENOUS
     Route: 042
  2. OXYCODONE HCL [Suspect]
     Indication: PRODUCT USED FOR UNKNOWN INDICATION
     Dosage: 450 MG, INTRAVENOUS
     Route: 042
  3. STERILE WATER FOR INJECTION IN PLASTIC CONTAINER [Concomitant]

REACTIONS (1)
  - EYE ABSCESS [None]
